FAERS Safety Report 23685995 (Version 1)
Quarter: 2024Q1

REPORT INFORMATION
  Report Type: Spontaneous
  Country: US (occurrence: None)
  Receive Date: 20240329
  Receipt Date: 20240329
  Transmission Date: 20240410
  Serious: No
  Sender: FDA-Public Use
  Company Number: 2024A073004

PATIENT
  Sex: Female

DRUGS (1)
  1. NEXIUM [Suspect]
     Active Substance: ESOMEPRAZOLE MAGNESIUM
     Indication: Oesophageal haemorrhage
     Dosage: 40.0MG UNKNOWN
     Route: 048

REACTIONS (5)
  - Drug hypersensitivity [Unknown]
  - Eructation [Unknown]
  - Sleep disorder [Unknown]
  - Headache [Unknown]
  - Product use issue [Unknown]
